FAERS Safety Report 16049444 (Version 1)
Quarter: 2019Q1

REPORT INFORMATION
  Report Type: Report from Study
  Country: JP (occurrence: JP)
  Receive Date: 20190307
  Receipt Date: 20190307
  Transmission Date: 20190418
  Serious: Yes (Death, Other)
  Sender: FDA-Public Use
  Company Number: JP-TEVA-2019-JP-1020307

PATIENT
  Age: 87 Year
  Sex: Male

DRUGS (1)
  1. SULPIRIDE [Suspect]
     Active Substance: SULPIRIDE
     Indication: PRODUCT USED FOR UNKNOWN INDICATION
     Dosage: 100 MILLIGRAM DAILY;
     Route: 065

REACTIONS (3)
  - Withdrawal syndrome [Fatal]
  - Neuroleptic malignant syndrome [Fatal]
  - Parkinsonism [Unknown]
